FAERS Safety Report 6573713-3 (Version None)
Quarter: 2010Q1

REPORT INFORMATION
  Report Type: 
  Country: None (occurrence: None)
  Receive Date: 20100208
  Receipt Date: 20100129
  Transmission Date: 20100710
  Serious: Yes (Hospitalization)
  Sender: FDA-Public Use
  Company Number: A0842121A

PATIENT
  Age: 62 Year
  Sex: Female

DRUGS (7)
  1. REQUIP [Suspect]
     Indication: RESTLESS LEGS SYNDROME
     Dosage: 2MG AT NIGHT
     Route: 048
  2. LISINOPRIL [Concomitant]
  3. JANUVIA [Concomitant]
  4. GLUCOTROL [Concomitant]
  5. WELLBUTRIN XL [Concomitant]
  6. BABY ASPIRIN [Concomitant]
  7. NICOTINE [Concomitant]

REACTIONS (2)
  - ASPIRATION [None]
  - PNEUMONIA [None]
